FAERS Safety Report 9101775 (Version 1)
Quarter: 2013Q1

REPORT INFORMATION
  Report Type: Spontaneous
  Country: US (occurrence: US)
  Receive Date: 20130218
  Receipt Date: 20130218
  Transmission Date: 20140127
  Serious: Yes (Other)
  Sender: FDA-Public Use
  Company Number: US-AMGEN-USASP2013009652

PATIENT
  Age: 47 Year
  Sex: Female

DRUGS (2)
  1. ENBREL [Suspect]
     Indication: RHEUMATOID ARTHRITIS
     Dosage: UNK
     Dates: start: 20121015
  2. METHYLPREDNISOLONE [Concomitant]
     Dosage: UNK

REACTIONS (2)
  - Knee operation [Recovered/Resolved]
  - Joint swelling [Not Recovered/Not Resolved]
